FAERS Safety Report 15215779 (Version 1)
Quarter: 2018Q3

REPORT INFORMATION
  Report Type: Spontaneous
  Country: CA (occurrence: CA)
  Receive Date: 20180703
  Receipt Date: 20180703
  Transmission Date: 20181010
  Serious: Yes (Death, Life-Threatening, Hospitalization)
  Sender: FDA-Public Use
  Company Number: None

PATIENT
  Age: 50 Year
  Sex: Female
  Weight: 76.5 kg

DRUGS (6)
  1. TORADOL [Suspect]
     Active Substance: KETOROLAC TROMETHAMINE
  2. BLOOD THINNER [Concomitant]
     Active Substance: UNSPECIFIED INGREDIENT
  3. DIABETIC PRESCRIPTIONS [Concomitant]
  4. KETOROLAC TROMETHAMINE. [Suspect]
     Active Substance: KETOROLAC TROMETHAMINE
     Indication: PAIN
     Route: 042
     Dates: start: 20170813, end: 20170824
  5. PAIN KILLER [Concomitant]
  6. KETOROLAC TROMETHAMINE. [Suspect]
     Active Substance: KETOROLAC TROMETHAMINE
     Indication: THROMBOSIS
     Route: 042
     Dates: start: 20170813, end: 20170824

REACTIONS (11)
  - Drug prescribing error [None]
  - Sudden death [None]
  - Thrombosis [None]
  - Abdominal discomfort [None]
  - Diarrhoea [None]
  - Hypotension [None]
  - Drug interaction [None]
  - Incorrect drug administration duration [None]
  - Gastrointestinal haemorrhage [None]
  - Tinnitus [None]
  - Confusional state [None]

NARRATIVE: CASE EVENT DATE: 20170824
